FAERS Safety Report 6737704-1 (Version None)
Quarter: 2010Q2

REPORT INFORMATION
  Report Type: 
  Country: None (occurrence: None)
  Receive Date: 20100524
  Receipt Date: 20100510
  Transmission Date: 20101027
  Serious: Yes (Hospitalization)
  Sender: FDA-Public Use
  Company Number: PHHY2010US30932

PATIENT
  Age: 91 Year
  Sex: Female

DRUGS (1)
  1. RECLAST [Suspect]
     Dosage: 5MG/ YEAR
     Route: 042

REACTIONS (2)
  - BLOOD CREATINE INCREASED [None]
  - GASTROENTERITIS [None]
